FAERS Safety Report 16781487 (Version 2)
Quarter: 2019Q3

REPORT INFORMATION
  Report Type: Spontaneous
  Country: PR (occurrence: PR)
  Receive Date: 20190906
  Receipt Date: 20190920
  Transmission Date: 20191005
  Serious: No
  Sender: FDA-Public Use
  Company Number: PR-PFIZER INC-2019383474

PATIENT
  Age: 79 Year
  Sex: Female
  Weight: 57 kg

DRUGS (1)
  1. IBRANCE [Suspect]
     Active Substance: PALBOCICLIB
     Indication: BREAST CANCER FEMALE
     Dosage: 125 MG, DAILY
     Route: 048
     Dates: start: 20190830

REACTIONS (4)
  - Taste disorder [Unknown]
  - Diarrhoea [Unknown]
  - Asthenia [Unknown]
  - Constipation [Unknown]

NARRATIVE: CASE EVENT DATE: 2019
